FAERS Safety Report 6082339-X (Version None)
Quarter: 2009Q1

REPORT INFORMATION
  Report Type: 
  Country: None (occurrence: None)
  Receive Date: 20090218
  Receipt Date: 20090205
  Transmission Date: 20090719
  Serious: Yes (Death, Life-Threatening, Hospitalization)
  Sender: FDA-Public Use
  Company Number: ZA-ROCHE-612722

PATIENT
  Sex: Male

DRUGS (7)
  1. CAPECITABINE [Suspect]
     Route: 048
     Dates: start: 20080808
  2. OXALIPLATIN [Suspect]
     Route: 041
     Dates: start: 20080808, end: 20080808
  3. BEVACIZUMAB [Suspect]
     Route: 065
  4. BETANOID [Concomitant]
     Indication: PREMEDICATION
     Dosage: INTRAVENOUS NOT OTHERWISE SPECIFIED
     Route: 042
     Dates: start: 20080612, end: 20080808
  5. ONICIT [Concomitant]
     Indication: NAUSEA
     Dosage: ROUTE: INTRAVENOUS NOS
     Route: 042
     Dates: start: 20080612, end: 20080808
  6. MAGNESIUM SULFATE [Concomitant]
     Dosage: ROUTE INTRAVENOUS NOS
     Route: 042
     Dates: start: 20080612, end: 20080808
  7. CALCIUM GLUCONATE [Concomitant]
     Route: 042
     Dates: start: 20080612, end: 20080808

REACTIONS (4)
  - DEHYDRATION [None]
  - DIARRHOEA [None]
  - SEPSIS [None]
  - VOMITING [None]
